FAERS Safety Report 9145370 (Version 1)
Quarter: 2013Q1

REPORT INFORMATION
  Report Type: Spontaneous
  Country: US (occurrence: US)
  Receive Date: 20130307
  Receipt Date: 20130307
  Transmission Date: 20140127
  Serious: No
  Sender: FDA-Public Use
  Company Number: US-JNJFOC-20130213876

PATIENT
  Sex: Female
  Weight: 90.72 kg

DRUGS (5)
  1. DURAGESIC [Suspect]
     Indication: FIBROMYALGIA
     Route: 062
  2. DURAGESIC [Suspect]
     Indication: BACK PAIN
     Route: 062
  3. CYMBALTA [Concomitant]
     Indication: FIBROMYALGIA
     Route: 065
  4. ABILIFY [Concomitant]
     Indication: FIBROMYALGIA
     Route: 065
  5. PROVIGIL [Concomitant]
     Indication: SLEEP APNOEA SYNDROME
     Route: 065

REACTIONS (2)
  - Wrong technique in drug usage process [Unknown]
  - Product quality issue [Unknown]
